FAERS Safety Report 6157706-6 (Version None)
Quarter: 2009Q2

REPORT INFORMATION
  Report Type: 
  Country: None (occurrence: None)
  Receive Date: 20090414
  Receipt Date: 20090404
  Transmission Date: 20091009
  Serious: Yes (Death, Life-Threatening, Hospitalization)
  Sender: FDA-Public Use
  Company Number: 2009EN000045

PATIENT
  Age: 29 Year
  Sex: Female
  Weight: 50.6 kg

DRUGS (7)
  1. ONCASPAR [Suspect]
     Indication: T-CELL TYPE ACUTE LEUKAEMIA
     Dosage: 3850 IU
     Dates: start: 20081219, end: 20090222
  2. METHOTREXATE [Suspect]
     Indication: T-CELL TYPE ACUTE LEUKAEMIA
     Dosage: 30 MG; INTH
     Route: 037
     Dates: end: 20090213
  3. CYCLOPHOSPHAMIDE [Concomitant]
  4. CYTARABINE [Concomitant]
  5. MERCAPTOPURINE [Concomitant]
  6. NELARABINE (506U78) [Concomitant]
  7. VINCRISTINE [Concomitant]

REACTIONS (5)
  - CEREBRAL HAEMORRHAGE [None]
  - COMA [None]
  - DISSEMINATED INTRAVASCULAR COAGULATION [None]
  - SUPERIOR SAGITTAL SINUS THROMBOSIS [None]
  - UNRESPONSIVE TO STIMULI [None]
